FAERS Safety Report 11770655 (Version 1)
Quarter: 2015Q4

REPORT INFORMATION
  Report Type: Spontaneous
  Country: US (occurrence: US)
  Receive Date: 20151123
  Receipt Date: 20151123
  Transmission Date: 20160304
  Serious: No
  Sender: FDA-Public Use
  Company Number: US-MEDA-2015110047

PATIENT
  Age: 72 Year
  Sex: Female
  Weight: 78 kg

DRUGS (7)
  1. AZELASTINE HYDROCHLORIDE. [Concomitant]
     Active Substance: AZELASTINE HYDROCHLORIDE
     Indication: NASAL CONGESTION
     Dates: start: 201502, end: 201502
  2. PRAVASTATIN [Concomitant]
     Active Substance: PRAVASTATIN\PRAVASTATIN SODIUM
     Route: 048
  3. ASTEPRO [Suspect]
     Active Substance: AZELASTINE HYDROCHLORIDE
     Indication: NASAL CONGESTION
     Dates: start: 201502, end: 20151109
  4. NASONEX [Concomitant]
     Active Substance: MOMETASONE FUROATE
     Indication: NASAL CONGESTION
     Dates: start: 201502, end: 201502
  5. CLARINEX [Concomitant]
     Active Substance: DESLORATADINE
     Route: 048
     Dates: start: 2005
  6. VITAMINS [Concomitant]
     Active Substance: VITAMINS
  7. ASTELIN [Concomitant]
     Active Substance: AZELASTINE HYDROCHLORIDE
     Indication: NASAL CONGESTION
     Dates: start: 2005, end: 201502

REACTIONS (3)
  - Nasal congestion [Unknown]
  - Condition aggravated [Unknown]
  - Ear infection [Unknown]

NARRATIVE: CASE EVENT DATE: 2015
